FAERS Safety Report 8919701 (Version 1)
Quarter: 2012Q4

REPORT INFORMATION
  Report Type: 
  Country: US (occurrence: US)
  Receive Date: 20121121
  Receipt Date: 20121121
  Transmission Date: 20130627
  Serious: No
  Sender: FDA-Public Use
  Company Number: US-VERTEX PHARMACEUTICAL INC.-2012-024746

PATIENT
  Age: 45 Year
  Sex: Female
  Weight: 59 kg

DRUGS (7)
  1. INCIVEK [Suspect]
     Indication: HEPATITIS C
     Dosage: 750 mg, tid
     Route: 048
     Dates: start: 20121111
  2. RIBAVIRIN [Suspect]
     Indication: HEPATITIS C
     Dosage: 600 mg, bid
     Route: 048
     Dates: start: 20121111
  3. PEGASYS [Suspect]
     Indication: HEPATITIS C
     Dosage: 180 ?g, qw
     Route: 058
     Dates: start: 20121110
  4. BACLOFEN [Concomitant]
     Indication: MUSCLE SPASMS
     Dosage: 30 mg, bid
     Route: 048
  5. LORAZEPAM [Concomitant]
     Indication: ANXIETY
     Dosage: 0.5 mg, bid
     Route: 048
  6. TIZANIDINE [Concomitant]
     Indication: MUSCLE SPASMS
     Dosage: UNK, qd
     Route: 048
  7. SYNTHROID [Concomitant]
     Indication: HYPOTHYROIDISM
     Dosage: 150 ?g, qd
     Route: 048

REACTIONS (3)
  - Insomnia [Not Recovered/Not Resolved]
  - Oral pain [Not Recovered/Not Resolved]
  - Rash erythematous [Not Recovered/Not Resolved]
